FAERS Safety Report 6814608-7 (Version None)
Quarter: 2010Q3

REPORT INFORMATION
  Report Type: 
  Country: None (occurrence: None)
  Receive Date: 20100702
  Receipt Date: 20100625
  Transmission Date: 20110219
  Serious: Yes (Other)
  Sender: FDA-Public Use
  Company Number: JP-PFIZER INC-2010079757

PATIENT
  Age: 75 Year
  Sex: Male

DRUGS (3)
  1. CHAMPIX [Suspect]
     Indication: SMOKING CESSATION THERAPY
     Dosage: 1 MG, 1X/DAY
     Route: 048
     Dates: start: 20100525, end: 20100621
  2. PRIMPERAN TAB [Concomitant]
     Indication: NAUSEA
     Dosage: UNK
     Route: 048
     Dates: start: 20100525, end: 20100621
  3. REBAMIPIDE [Concomitant]
     Dosage: UNK
     Dates: start: 20100525, end: 20100621

REACTIONS (3)
  - ALANINE AMINOTRANSFERASE INCREASED [None]
  - CHROMATURIA [None]
  - DECREASED APPETITE [None]
